FAERS Safety Report 14928771 (Version 1)
Quarter: 2018Q2

REPORT INFORMATION
  Report Type: Spontaneous
  Country: LB (occurrence: LB)
  Receive Date: 20180523
  Receipt Date: 20180523
  Transmission Date: 20180711
  Serious: Yes (Other)
  Sender: FDA-Public Use
  Company Number: LB-MYLANLABS-2018M1033804

PATIENT
  Age: 30 Year
  Sex: Female

DRUGS (1)
  1. ONDANSETRON [Suspect]
     Active Substance: ONDANSETRON
     Indication: NAUSEA

REACTIONS (4)
  - Off label use [Recovered/Resolved]
  - Drug eruption [Recovered/Resolved]
  - Maternal exposure during pregnancy [Recovered/Resolved]
  - Pityriasis rosea [Recovered/Resolved]
